FAERS Safety Report 7652568-X (Version None)
Quarter: 2011Q3

REPORT INFORMATION
  Report Type: 
  Country: None (occurrence: None)
  Receive Date: 20110728
  Receipt Date: 20110713
  Transmission Date: 20111222
  Serious: Yes (Disabling, Other)
  Sender: FDA-Public Use
  Company Number: 2011P1007698

PATIENT
  Age: 61 Year
  Sex: Female
  Weight: 63.5036 kg

DRUGS (10)
  1. FENTANYL [Suspect]
     Indication: SYSTEMIC LUPUS ERYTHEMATOSUS
     Dosage: 1 PATCH; Q72HR; TDER
     Route: 062
     Dates: start: 20110301
  2. FENTANYL [Suspect]
     Indication: PAIN
     Dosage: 1 PATCH; Q72HR; TDER
     Route: 062
     Dates: start: 20110301
  3. FENTANYL [Suspect]
     Indication: PAIN
     Dosage: 1 PATCH; Q72H; TDER, 1 PATCH; Q48H; TDER
     Route: 062
     Dates: start: 20110706
  4. FENTANYL [Suspect]
     Indication: SYSTEMIC LUPUS ERYTHEMATOSUS
     Dosage: 1 PATCH; Q72H; TDER, 1 PATCH; Q48H; TDER
     Route: 062
     Dates: start: 20110706
  5. FENTANYL [Suspect]
     Indication: PAIN
     Dosage: 1 PATCH; Q72H; TDER, 1 PATCH; Q48H; TDER
     Route: 062
  6. FENTANYL [Suspect]
     Indication: SYSTEMIC LUPUS ERYTHEMATOSUS
     Dosage: 1 PATCH; Q72H; TDER, 1 PATCH; Q48H; TDER
     Route: 062
  7. FENTANYL [Suspect]
     Indication: SYSTEMIC LUPUS ERYTHEMATOSUS
     Dosage: 1 PATCH; Q72H; TDER, 1 PATCH; Q48H; TDER
     Route: 062
     Dates: start: 20110706
  8. FENTANYL [Suspect]
     Indication: PAIN
     Dosage: 1 PATCH; Q72H; TDER, 1 PATCH; Q48H; TDER
     Route: 062
     Dates: start: 20110706
  9. FENTANYL [Suspect]
     Indication: SYSTEMIC LUPUS ERYTHEMATOSUS
     Dosage: 1 PATCH; Q72H; TDER, 1 PATCH; Q48H; TDER
     Route: 062
  10. FENTANYL [Suspect]
     Indication: PAIN
     Dosage: 1 PATCH; Q72H; TDER, 1 PATCH; Q48H; TDER
     Route: 062

REACTIONS (10)
  - HAEMORRHAGE [None]
  - CHEMICAL INJURY [None]
  - DRUG INEFFECTIVE [None]
  - SKIN EXFOLIATION [None]
  - PRODUCT SUBSTITUTION ISSUE [None]
  - SYSTEMIC LUPUS ERYTHEMATOSUS [None]
  - APPLICATION SITE BURN [None]
  - PRODUCT TAMPERING [None]
  - MOBILITY DECREASED [None]
  - ACTIVITIES OF DAILY LIVING IMPAIRED [None]
